FAERS Safety Report 11561816 (Version 3)
Quarter: 2015Q4

REPORT INFORMATION
  Report Type: Spontaneous
  Country: FR (occurrence: FR)
  Receive Date: 20150928
  Receipt Date: 20151022
  Transmission Date: 20160304
  Serious: Yes (Death, Hospitalization)
  Sender: FDA-Public Use
  Company Number: FR-SA-2015SA145440

PATIENT
  Age: 38 Year
  Sex: Female

DRUGS (8)
  1. AUBAGIO [Suspect]
     Active Substance: TERIFLUNOMIDE
     Indication: MULTIPLE SCLEROSIS
     Route: 048
     Dates: start: 20150424, end: 20150915
  2. LYRICA [Concomitant]
     Active Substance: PREGABALIN
     Indication: NEURALGIA
     Route: 048
     Dates: start: 20150910, end: 20150915
  3. EUPANTOL [Concomitant]
     Active Substance: PANTOPRAZOLE SODIUM
     Indication: DYSPEPSIA
     Route: 048
     Dates: start: 20150911, end: 20150915
  4. ENOXAPARIN [Concomitant]
     Active Substance: ENOXAPARIN
     Indication: PROPHYLAXIS
     Route: 058
     Dates: start: 20150913, end: 20150915
  5. ASPEGIC [Concomitant]
     Active Substance: ASPIRIN DL-LYSINE
     Indication: ACUTE CORONARY SYNDROME
     Route: 048
     Dates: start: 20150914, end: 20150915
  6. CLAMOXYL [Concomitant]
     Active Substance: AMOXICILLIN\CLAVULANIC ACID
     Indication: URINARY TRACT INFECTION
     Dates: start: 20150911, end: 20150915
  7. XANAX [Concomitant]
     Active Substance: ALPRAZOLAM
     Indication: ANXIETY
     Route: 048
     Dates: start: 20150913, end: 20150915
  8. SOLU-MEDROL [Concomitant]
     Active Substance: METHYLPREDNISOLONE SODIUM SUCCINATE
     Indication: MULTIPLE SCLEROSIS RELAPSE
     Route: 042
     Dates: start: 20150913, end: 20150915

REACTIONS (9)
  - Hypocapnia [Fatal]
  - Cardiac failure [Fatal]
  - Dyspnoea [Fatal]
  - Hypoxia [Fatal]
  - Metastatic neoplasm [Fatal]
  - Pulmonary hypertension [Fatal]
  - Multiple sclerosis relapse [Unknown]
  - Central nervous system lesion [Unknown]
  - Optic neuritis [Unknown]

NARRATIVE: CASE EVENT DATE: 201509
